FAERS Safety Report 8227459-6 (Version None)
Quarter: 2012Q1

REPORT INFORMATION
  Report Type: 
  Country: None (occurrence: None)
  Receive Date: 20120322
  Receipt Date: 20120315
  Transmission Date: 20120608
  Serious: Yes (Hospitalization)
  Sender: FDA-Public Use
  Company Number: US-BAYER-2011-081982

PATIENT
  Age: 17 Year
  Sex: Female
  Weight: 77.098 kg

DRUGS (12)
  1. YAZ [Suspect]
     Dosage: UNK
     Dates: start: 20080701, end: 20090204
  2. ACETAMINOPHEN W/ CODEINE [Concomitant]
     Dosage: UNK
     Dates: start: 20090109
  3. MICRONOR [Concomitant]
     Dosage: UNK
     Dates: start: 20080210, end: 20090609
  4. SKELAXIN [Concomitant]
     Dosage: 800 MG, UNK
     Dates: start: 20090106
  5. MIRALAX [Concomitant]
     Dosage: 17 G, UNK
  6. AMITRIPTYLINE HCL [Concomitant]
     Indication: MIGRAINE
     Dosage: 10 MG, UNK
     Dates: start: 20050328, end: 20081201
  7. PERCOCET [Concomitant]
     Dosage: UNK UNK, PRN
  8. LORAZEPAM [Concomitant]
     Dosage: UNK UNK, PRN
     Dates: start: 20090109
  9. DIFFERIN [Concomitant]
  10. IBUPROFEN [Concomitant]
     Dosage: UNK
     Dates: start: 20050201, end: 20090201
  11. MAGNESIUM OXIDE [Concomitant]
     Dosage: 250 MG, BID
  12. MULTI-VITAMINS [Concomitant]

REACTIONS (10)
  - MUSCLE SPASMS [None]
  - MUSCULAR WEAKNESS [None]
  - INSOMNIA [None]
  - OEDEMA PERIPHERAL [None]
  - EMOTIONAL DISTRESS [None]
  - PAIN IN EXTREMITY [None]
  - DEEP VEIN THROMBOSIS [None]
  - PAIN [None]
  - HALLUCINATION [None]
  - FEAR [None]
